FAERS Safety Report 6515920-1 (Version None)
Quarter: 2009Q4

REPORT INFORMATION
  Report Type: 
  Country: None (occurrence: None)
  Receive Date: 20091223
  Receipt Date: 20081230
  Transmission Date: 20100525
  Serious: No
  Sender: FDA-Public Use
  Company Number: US-ABBOTT-08P-163-0493216-00

PATIENT
  Sex: Male
  Weight: 101.7 kg

DRUGS (20)
  1. LUPRON DEPOT [Suspect]
     Indication: PROSTATE CANCER
     Dates: start: 19920101
  2. AMLODIPINE [Concomitant]
     Indication: HYPERTENSION
  3. AFEDITAB CR [Concomitant]
     Indication: HYPERTENSION
  4. BABY ASPIRIN [Concomitant]
     Indication: DRUG USE FOR UNKNOWN INDICATION
  5. COREG [Concomitant]
     Indication: DRUG THERAPY
  6. DOXEPIN HCL [Concomitant]
     Indication: ANXIETY
  7. FLUTAMIDE [Concomitant]
     Indication: DRUG USE FOR UNKNOWN INDICATION
  8. IMDUR [Concomitant]
     Indication: VASODILATION PROCEDURE
  9. LIPITOR [Concomitant]
     Indication: BLOOD CHOLESTEROL INCREASED
  10. LISINOPRIL [Concomitant]
     Indication: HYPERTENSION
  11. PLAVIX [Concomitant]
     Indication: DRUG USE FOR UNKNOWN INDICATION
  12. SODIUM BICAR [Concomitant]
     Indication: NEPHROLITHIASIS
  13. TRICOR [Concomitant]
     Indication: BLOOD TRIGLYCERIDES INCREASED
  14. VITAMIN D3 [Concomitant]
     Indication: DRUG USE FOR UNKNOWN INDICATION
  15. NOVALOG 70/30 [Concomitant]
     Indication: DIABETES MELLITUS
     Dosage: 42 UNIT IN AM   48 UNITS IN PM   ADJUST TO READING   42 UNITS IN AM, 48 UNITS IN PM, ADJUST
  16. ACIPHEX [Concomitant]
     Indication: HIATUS HERNIA
  17. LORAZEPAM [Concomitant]
     Indication: ANXIETY
  18. LEXAPRO [Concomitant]
     Indication: ANXIETY
  19. NITROGLYCERIN [Concomitant]
     Indication: DRUG USE FOR UNKNOWN INDICATION
  20. MIRILAX [Concomitant]
     Indication: GASTROINTESTINAL DISORDER

REACTIONS (4)
  - ANAEMIA [None]
  - BLOOD IRON INCREASED [None]
  - GENE MUTATION [None]
  - OSTEOPOROSIS [None]
